FAERS Safety Report 23410415 (Version 2)
Quarter: 2024Q1

REPORT INFORMATION
  Report Type: Spontaneous
  Country: GB (occurrence: GB)
  Receive Date: 20240117
  Receipt Date: 20240227
  Transmission Date: 20240410
  Serious: Yes (Other)
  Sender: FDA-Public Use
  Company Number: GB-BIOVITRUM-2024-GB-000790

PATIENT
  Age: 30 Year
  Sex: Female

DRUGS (4)
  1. KINERET [Suspect]
     Active Substance: ANAKINRA
     Indication: Still^s disease
     Dosage: UNSURE OF CURRENT DOSE
  2. KINERET [Suspect]
     Active Substance: ANAKINRA
     Indication: Haemophagocytic lymphohistiocytosis
     Dosage: 200 MG DAILY FOR ABOUT 10 MONTHS
     Dates: start: 2014
  3. KINERET [Suspect]
     Active Substance: ANAKINRA
     Dosage: 100 MG DAILY WITH SOME PERIODS
     Dates: start: 2014
  4. KINERET [Suspect]
     Active Substance: ANAKINRA
     Dosage: 100 MG ALTERNATE DAYS

REACTIONS (2)
  - Secondary amyloidosis [Unknown]
  - Injection site reaction [Unknown]
